FAERS Safety Report 8406003 (Version 3)
Quarter: 2013Q4

REPORT INFORMATION
  Report Type: Spontaneous
  Country: US (occurrence: US)
  Receive Date: 20120215
  Receipt Date: 20131118
  Transmission Date: 20140711
  Serious: No
  Sender: FDA-Public Use
  Company Number: US-JNJFOC-20120203845

PATIENT
  Age: 48 Year
  Sex: Female
  Weight: 56.7 kg

DRUGS (1)
  1. DURAGESIC [Suspect]
     Indication: PAIN
     Route: 062
     Dates: start: 20120202

REACTIONS (2)
  - Pruritus generalised [Recovered/Resolved]
  - Drug ineffective [Not Recovered/Not Resolved]
